FAERS Safety Report 21623259 (Version 1)
Quarter: 2022Q4

REPORT INFORMATION
  Report Type: Spontaneous
  Country: US (occurrence: None)
  Receive Date: 20221121
  Receipt Date: 20221121
  Transmission Date: 20230112
  Serious: Yes (Hospitalization, Other)
  Sender: FDA-Public Use
  Company Number: None

PATIENT
  Age: 70 Year
  Sex: Female
  Weight: 68 kg

DRUGS (2)
  1. PAXLOVID [Suspect]
     Active Substance: NIRMATRELVIR\RITONAVIR
     Indication: COVID-19 treatment
     Dosage: FREQUENCY : TWICE A DAY;?
     Route: 048
  2. ATORVASTATIN [Suspect]
     Active Substance: ATORVASTATIN
     Indication: Hypercholesterolaemia
     Dosage: FREQUENCY : AT BEDTIME;?
     Route: 048
     Dates: start: 20221020

REACTIONS (6)
  - Contraindicated product administered [None]
  - Septic shock [None]
  - Acute kidney injury [None]
  - Hypoglycaemia [None]
  - Product prescribing error [None]
  - Incorrect dose administered [None]

NARRATIVE: CASE EVENT DATE: 20221026
